FAERS Safety Report 16571696 (Version 23)
Quarter: 2024Q4

REPORT INFORMATION
  Report Type: Spontaneous
  Country: IN (occurrence: IN)
  Receive Date: 20190715
  Receipt Date: 20241218
  Transmission Date: 20250115
  Serious: Yes (Other)
  Sender: PFIZER
  Company Number: IN-PFIZER INC-2019111745

PATIENT
  Age: 48 Year
  Sex: Female
  Weight: 77 kg

DRUGS (11)
  1. CRIZOTINIB [Suspect]
     Active Substance: CRIZOTINIB
     Indication: Non-small cell lung cancer metastatic
     Dosage: 250 MG, 2X/DAY (TWO TIMES A DAY)
     Route: 048
     Dates: start: 20140918
  2. FULVESTRANT [Concomitant]
     Active Substance: FULVESTRANT
     Dosage: 500 MG
  3. TAMOXIFEN ABIC [Concomitant]
     Dosage: 20 MG, 1X/DAY FOR 3 MONTHS
     Dates: start: 202006
  4. LEVETIRACETAM [Concomitant]
     Active Substance: LEVETIRACETAM
     Dosage: 500 MG, 2X/DAY FOR 3 MONTHS
  5. CCM [Concomitant]
     Dosage: 1-0-1
  6. EXEMESTANE [Concomitant]
     Active Substance: EXEMESTANE
     Dosage: 25 MG 1-0-0
  7. THREPTIN [Concomitant]
     Dosage: 3-0-3 X 2
  8. OFLOXACIN [Concomitant]
     Active Substance: OFLOXACIN
     Dosage: 200 MG, 2X/DAY
  9. ZANTAC [Concomitant]
     Active Substance: RANITIDINE HYDROCHLORIDE
     Dosage: 150 MG, 2X/DAY
  10. VIBACT [Concomitant]
     Dosage: 1 DF, 2X/DAY
  11. TAMOXIFEN [Concomitant]
     Active Substance: TAMOXIFEN
     Dosage: UNK
     Dates: start: 202006

REACTIONS (28)
  - Second primary malignancy [Unknown]
  - Paget^s disease of nipple [Unknown]
  - Haemoglobin decreased [Unknown]
  - Nephrolithiasis [Unknown]
  - Breast cyst [Unknown]
  - Pleural effusion [Unknown]
  - Lymphoedema [Unknown]
  - Oedema peripheral [Unknown]
  - Pruritus [Unknown]
  - Pain [Unknown]
  - Headache [Unknown]
  - Neoplasm progression [Unknown]
  - Weight decreased [Unknown]
  - Nausea [Unknown]
  - Vomiting [Unknown]
  - Dyspnoea exertional [Unknown]
  - White blood cell count abnormal [Unknown]
  - Diarrhoea [Unknown]
  - Abdominal pain upper [Unknown]
  - Weight increased [Unknown]
  - Pleural thickening [Unknown]
  - Hypoproteinaemia [Unknown]
  - Generalised oedema [Unknown]
  - Blood creatinine increased [Unknown]
  - Alanine aminotransferase increased [Unknown]
  - Protein total decreased [Unknown]
  - Blood albumin decreased [Unknown]
  - Product dose omission issue [Unknown]

NARRATIVE: CASE EVENT DATE: 20220124
